FAERS Safety Report 5137617-5 (Version None)
Quarter: 2006Q4

REPORT INFORMATION
  Report Type: 
  Country: None (occurrence: None)
  Receive Date: 20061030
  Receipt Date: 20051205
  Transmission Date: 20070319
  Serious: No
  Sender: FDA-Public Use
  Company Number: US-GLAXOSMITHKLINE-A0584655A

PATIENT
  Age: 79 Year
  Sex: Female

DRUGS (3)
  1. ADVAIR HFA [Suspect]
     Indication: ASTHMA
     Dosage: 1PUFF PER DAY
     Route: 055
  2. LIPITOR [Concomitant]
  3. SERAX [Concomitant]

REACTIONS (5)
  - DYSGEUSIA [None]
  - GLOSSODYNIA [None]
  - OESOPHAGEAL PAIN [None]
  - PHARMACEUTICAL PRODUCT COMPLAINT [None]
  - THROAT IRRITATION [None]
